FAERS Safety Report 4338725-9 (Version None)
Quarter: 2004Q2

REPORT INFORMATION
  Report Type: 
  Country: None (occurrence: None)
  Receive Date: 20040414
  Receipt Date: 20040405
  Transmission Date: 20050107
  Serious: Yes (Other)
  Sender: FDA-Public Use
  Company Number: GB-ROCHE-363925

PATIENT
  Age: 21 Year
  Sex: Female
  Weight: 60 kg

DRUGS (2)
  1. ROACCUTANE [Suspect]
     Indication: ACNE
     Route: 048
     Dates: start: 20040209, end: 20040301
  2. ROACCUTANE [Suspect]
     Route: 048
     Dates: start: 20020415

REACTIONS (3)
  - CONFUSIONAL STATE [None]
  - MOOD ALTERED [None]
  - THINKING ABNORMAL [None]
